FAERS Safety Report 14249097 (Version 6)
Quarter: 2018Q2

REPORT INFORMATION
  Report Type: Spontaneous
  Country: GB (occurrence: GB)
  Receive Date: 20171204
  Receipt Date: 20180503
  Transmission Date: 20180711
  Serious: Yes (Life-Threatening, Hospitalization, Other)
  Sender: FDA-Public Use
  Company Number: GB-PFIZER INC-2017513037

PATIENT
  Age: 42 Year
  Sex: Female

DRUGS (11)
  1. AMLODIPINE [Concomitant]
     Active Substance: AMLODIPINE BESYLATE
     Indication: HYPERTENSION
     Dosage: UNK
  2. NOREPINEPHRINE BITARTRATE. [Suspect]
     Active Substance: NOREPINEPHRINE BITARTRATE
     Indication: HYPOTENSION
     Dosage: UNK
  3. CHLORPHENIRAMINE /00072501/ [Concomitant]
     Active Substance: CHLORPHENIRAMINE
     Indication: ANAPHYLAXIS PROPHYLAXIS
     Dosage: 10 MG, UNK
  4. EPINEPHRINE. [Interacting]
     Active Substance: EPINEPHRINE
     Indication: BRADYCARDIA
     Dosage: BOLUSES OF 0.1 MG
     Route: 040
  5. NOREPINEPHRINE BITARTRATE. [Interacting]
     Active Substance: NOREPINEPHRINE BITARTRATE
     Indication: BRADYCARDIA
  6. LABETALOL [Interacting]
     Active Substance: LABETALOL\LABETALOL HYDROCHLORIDE
     Indication: HYPERTENSION
     Dosage: UNK,(ORAL LABETALOL HAD BEEN GIVEN 2 H PREVIOUSLY)
     Route: 048
  7. CANDESARTAN. [Concomitant]
     Active Substance: CANDESARTAN
     Indication: HYPERTENSION
     Dosage: UNK
  8. EPINEPHRINE. [Interacting]
     Active Substance: EPINEPHRINE
     Indication: HYPOTENSION
     Dosage: 1 MG, UNK (THREE BOLUSES)
     Route: 040
  9. DOXAZOSIN [Concomitant]
     Active Substance: DOXAZOSIN\DOXAZOSIN MESYLATE
     Indication: HYPERTENSION
     Dosage: UNK
  10. ATROPINE. [Concomitant]
     Active Substance: ATROPINE
     Indication: BRADYCARDIA
     Dosage: UNK
  11. HYDROCORTISONE. [Concomitant]
     Active Substance: HYDROCORTISONE
     Indication: ANAPHYLAXIS PROPHYLAXIS
     Dosage: 100 MG, UNK

REACTIONS (2)
  - Drug interaction [Unknown]
  - Drug ineffective [Recovered/Resolved]
